FAERS Safety Report 5846995-0 (Version None)
Quarter: 2008Q3

REPORT INFORMATION
  Report Type: 
  Country: None (occurrence: None)
  Receive Date: 20080815
  Receipt Date: 20080808
  Transmission Date: 20090109
  Serious: Yes (Hospitalization)
  Sender: FDA-Public Use
  Company Number: MY-ABBOTT-08P-101-0469843-00

PATIENT

DRUGS (1)
  1. EPILIM [Suspect]
     Indication: EPILEPSY
     Route: 048

REACTIONS (2)
  - HYPERSENSITIVITY [None]
  - STEVENS-JOHNSON SYNDROME [None]
